FAERS Safety Report 9534317 (Version 1)
Quarter: 2013Q3

REPORT INFORMATION
  Report Type: Spontaneous
  Country: US (occurrence: US)
  Receive Date: 20130918
  Receipt Date: 20130918
  Transmission Date: 20140515
  Serious: Yes (Other)
  Sender: FDA-Public Use
  Company Number: 2013SP002659

PATIENT
  Sex: Male

DRUGS (3)
  1. LUNESTA [Suspect]
     Indication: INSOMNIA
     Route: 048
  2. ANTIHYPERTENSIVES [Concomitant]
     Indication: HYPERTENSION
  3. PLAVIX [Concomitant]
     Indication: PRODUCT USED FOR UNKNOWN INDICATION

REACTIONS (3)
  - Cholecystectomy [Recovered/Resolved]
  - VIIth nerve paralysis [Recovered/Resolved]
  - Initial insomnia [Unknown]
